FAERS Safety Report 4479809-4 (Version None)
Quarter: 2004Q4

REPORT INFORMATION
  Report Type: 
  Country: None (occurrence: None)
  Receive Date: 20041019
  Receipt Date: 20041011
  Transmission Date: 20050328
  Serious: Yes (Death)
  Sender: FDA-Public Use
  Company Number: PERIO-2004-0091

PATIENT
  Age: 70 Year
  Sex: Male

DRUGS (2)
  1. PERIOSTAT (DOXYCYCLINE HYCLATE) (TABLETS) [Suspect]
     Indication: PERIODONTITIS
     Dosage: 20 MG, BID, PER ORAL
     Route: 048
     Dates: start: 20040510
  2. PERIOSTAT (DOXYCYCLINE HYCLATE) (TABLETS) [Suspect]
     Indication: PERIODONTITIS
     Dosage: 20 MG, BID, PER ORAL
     Route: 048
     Dates: start: 20040601

REACTIONS (1)
  - COMPLETED SUICIDE [None]
